FAERS Safety Report 10410513 (Version 2)
Quarter: 2014Q3

REPORT INFORMATION
  Report Type: Spontaneous
  Country: US (occurrence: US)
  Receive Date: 20140826
  Receipt Date: 20140826
  Transmission Date: 20150326
  Serious: No
  Sender: FDA-Public Use
  Company Number: US-BRISTOL-MYERS SQUIBB COMPANY-19115187

PATIENT
  Age: 6 Year
  Sex: Male
  Weight: 19.5 kg

DRUGS (1)
  1. KENALOG-40 [Suspect]
     Active Substance: TRIAMCINOLONE ACETONIDE
     Dosage: 20FEB13.
     Dates: start: 20130220, end: 20130220

REACTIONS (1)
  - Injection site atrophy [Unknown]
